FAERS Safety Report 17360781 (Version 1)
Quarter: 2020Q1

REPORT INFORMATION
  Report Type: Spontaneous
  Country: US (occurrence: US)
  Receive Date: 20200117
  Receipt Date: 20200117
  Transmission Date: 20200409
  Serious: No
  Sender: FDA-Public Use
  Company Number: None

PATIENT
  Age: 50 Year
  Sex: Male

DRUGS (1)
  1. SYMTUZA [Suspect]
     Active Substance: COBICISTAT\DARUNAVIR\EMTRICITABINE\TENOFOVIR ALAFENAMIDE
     Dosage: ?          OTHER DOSE:800-150-200-10MG;?
     Route: 048

REACTIONS (3)
  - Product outer packaging issue [None]
  - Product packaging quantity issue [None]
  - Manufacturing product shipping issue [None]

NARRATIVE: CASE EVENT DATE: 20200117
